FAERS Safety Report 11102773 (Version 1)
Quarter: 2015Q2

REPORT INFORMATION
  Report Type: Spontaneous
  Country: CA (occurrence: CA)
  Receive Date: 20150511
  Receipt Date: 20150511
  Transmission Date: 20150821
  Serious: Yes (Other)
  Sender: FDA-Public Use
  Company Number: CA-BEH-2013038262

PATIENT
  Age: 30 Year
  Sex: Male

DRUGS (9)
  1. TOPIRAMATE. [Concomitant]
     Active Substance: TOPIRAMATE
     Indication: STATUS EPILEPTICUS
  2. ANTIBIOTICS [Concomitant]
     Active Substance: UNSPECIFIED INGREDIENT
     Indication: STATUS EPILEPTICUS
  3. VIGABATRIN [Concomitant]
     Active Substance: VIGABATRIN
     Indication: STATUS EPILEPTICUS
  4. GABAPENTIN. [Concomitant]
     Active Substance: GABAPENTIN
     Indication: STATUS EPILEPTICUS
  5. PHENOBARBITAL. [Concomitant]
     Active Substance: PHENOBARBITAL
     Indication: STATUS EPILEPTICUS
  6. LEVETIRACETAM. [Concomitant]
     Active Substance: LEVETIRACETAM
     Indication: STATUS EPILEPTICUS
  7. LACOSAMIDE [Concomitant]
     Active Substance: LACOSAMIDE
     Indication: STATUS EPILEPTICUS
  8. INTRAVENOUS IMMUNOGLOBULIN [Suspect]
     Active Substance: HUMAN IMMUNOGLOBULIN G
     Indication: STATUS EPILEPTICUS
  9. ACYCLOVIR. [Concomitant]
     Active Substance: ACYCLOVIR
     Indication: STATUS EPILEPTICUS

REACTIONS (2)
  - Status epilepticus [Unknown]
  - Drug ineffective for unapproved indication [Unknown]
